FAERS Safety Report 5009870-X (Version None)
Quarter: 2006Q2

REPORT INFORMATION
  Report Type: 
  Country: None (occurrence: None)
  Receive Date: 20060522
  Receipt Date: 20060512
  Transmission Date: 20061013
  Serious: Yes (Hospitalization)
  Sender: FDA-Public Use
  Company Number: GXKR2006IT02670

PATIENT
  Age: 68 Year
  Sex: Female

DRUGS (1)
  1. ORPHENADRINE (NGX) (ORPHENADRINE) [Suspect]
     Indication: MYALGIA
     Dosage: 50 MG , QD, ORAL
     Route: 048

REACTIONS (2)
  - SYNCOPE [None]
  - TORSADE DE POINTES [None]
